FAERS Safety Report 5288388-3 (Version None)
Quarter: 2007Q2

REPORT INFORMATION
  Report Type: 
  Country: None (occurrence: None)
  Receive Date: 20070405
  Receipt Date: 20070327
  Transmission Date: 20071010
  Serious: Yes (Other)
  Sender: FDA-Public Use
  Company Number: 2007SE01737

PATIENT
  Age: 25740 Day
  Sex: Male

DRUGS (5)
  1. NEXIUM [Suspect]
     Indication: PROPHYLAXIS AGAINST GASTROINTESTINAL ULCER
     Route: 042
     Dates: start: 20070312, end: 20070317
  2. LEVOXACIN [Suspect]
     Indication: DECUBITUS ULCER
     Route: 042
     Dates: start: 20070316, end: 20070317
  3. TIENAM [Suspect]
     Indication: DECUBITUS ULCER
     Route: 042
     Dates: start: 20070316, end: 20070317
  4. ASPIRIN [Concomitant]
     Route: 048
  5. LANSOX [Concomitant]
     Route: 048

REACTIONS (2)
  - APPLICATION SITE ERYTHEMA [None]
  - INFUSION SITE ERYTHEMA [None]
